FAERS Safety Report 16809603 (Version 1)
Quarter: 2019Q3

REPORT INFORMATION
  Report Type: Spontaneous
  Country: AR (occurrence: AR)
  Receive Date: 20190916
  Receipt Date: 20190916
  Transmission Date: 20191005
  Serious: Yes (Other)
  Sender: FDA-Public Use
  Company Number: AR-AMGEN-ARGSP2019149672

PATIENT
  Age: 82 Year
  Sex: Female

DRUGS (1)
  1. ENBREL [Suspect]
     Active Substance: ETANERCEPT
     Indication: RHEUMATOID ARTHRITIS
     Dosage: 50 MILLIGRAM, QWK
     Route: 065
     Dates: start: 20060728

REACTIONS (5)
  - Gait disturbance [Unknown]
  - Tremor [Unknown]
  - Femur fracture [Unknown]
  - Bone infarction [Unknown]
  - Fear [Unknown]

NARRATIVE: CASE EVENT DATE: 2014
